FAERS Safety Report 4293121-8 (Version None)
Quarter: 2004Q1

REPORT INFORMATION
  Report Type: 
  Country: None (occurrence: None)
  Receive Date: 20040212
  Receipt Date: 20030423
  Transmission Date: 20041129
  Serious: No
  Sender: FDA-Public Use
  Company Number: US-GLAXOSMITHKLINE-A0406027A

PATIENT
  Age: 36 Year
  Sex: Female

DRUGS (2)
  1. PAXIL [Suspect]
     Indication: ANXIETY
     Route: 048
     Dates: start: 20030402
  2. CLONAZEPAM [Concomitant]
     Route: 048

REACTIONS (5)
  - DIZZINESS [None]
  - HUNGER [None]
  - NAUSEA [None]
  - OBSESSIVE THOUGHTS [None]
  - WEIGHT INCREASED [None]
